FAERS Safety Report 14342086 (Version 1)
Quarter: 2018Q1

REPORT INFORMATION
  Report Type: Spontaneous
  Country: FR (occurrence: FR)
  Receive Date: 20180102
  Receipt Date: 20180102
  Transmission Date: 20180509
  Serious: Yes (Other)
  Sender: FDA-Public Use
  Company Number: FR-FERRINGPH-2017FE06398

PATIENT

DRUGS (1)
  1. PROPESS [Suspect]
     Active Substance: DINOPROSTONE
     Indication: LABOUR INDUCTION
     Dosage: 1 DF, ONCE/SINGLE
     Route: 067
     Dates: start: 20171213, end: 20171213

REACTIONS (10)
  - Intrapartum haemorrhage [Recovered/Resolved]
  - Migraine [Recovered/Resolved]
  - Premature separation of placenta [Recovered/Resolved]
  - Contraindicated product administered [Unknown]
  - Retroplacental haematoma [Recovered/Resolved]
  - Product use issue [Unknown]
  - Blood pressure increased [Recovered/Resolved]
  - Off label use [Unknown]
  - Abdominal pain [Recovered/Resolved]
  - Nausea [Recovered/Resolved]

NARRATIVE: CASE EVENT DATE: 20171213
